FAERS Safety Report 24553364 (Version 1)
Quarter: 2024Q4

REPORT INFORMATION
  Report Type: Report from Study
  Country: US (occurrence: US)
  Receive Date: 20241028
  Receipt Date: 20241028
  Transmission Date: 20250114
  Serious: No
  Sender: ROCHE
  Company Number: US-ROCHE-3537727

PATIENT
  Sex: Female
  Weight: 64.41 kg

DRUGS (1)
  1. NUTROPIN AQ [Suspect]
     Active Substance: SOMATROPIN
     Indication: Growth hormone deficiency
     Route: 065
     Dates: start: 2011

REACTIONS (3)
  - Product dose omission issue [Unknown]
  - Memory impairment [Recovered/Resolved]
  - Fatigue [Unknown]
